FAERS Safety Report 4771426-1 (Version None)
Quarter: 2005Q3

REPORT INFORMATION
  Report Type: 
  Country: None (occurrence: None)
  Receive Date: 20050915
  Receipt Date: 20050830
  Transmission Date: 20060218
  Serious: Yes (Life-Threatening, Hospitalization)
  Sender: FDA-Public Use
  Company Number: USA0508105292

PATIENT
  Age: 37 Year
  Sex: Male

DRUGS (7)
  1. CYMBALTA [Suspect]
     Indication: DEPRESSION
     Dosage: 60 MG DAY
     Dates: start: 20050101
  2. PROZAC [Suspect]
     Dosage: 20 MG
     Dates: start: 20050622
  3. KLONOPIN [Concomitant]
  4. VALIUM [Concomitant]
  5. TOPAMAX [Concomitant]
  6. EFFEXOR XR [Concomitant]
  7. WELLBUTRIN [Concomitant]

REACTIONS (2)
  - DEPRESSION [None]
  - VENTRICULAR FIBRILLATION [None]
